FAERS Safety Report 16325439 (Version 2)
Quarter: 2020Q3

REPORT INFORMATION
  Report Type: Spontaneous
  Country: US (occurrence: US)
  Receive Date: 20190517
  Receipt Date: 20200904
  Transmission Date: 20201102
  Serious: Yes (Hospitalization, Other)
  Sender: FDA-Public Use
  Company Number: US-GILEAD-2019-0407897

PATIENT
  Sex: Female
  Weight: 86.17 kg

DRUGS (70)
  1. TIZANIDINE. [Concomitant]
     Active Substance: TIZANIDINE
  2. VENLAFAXINE [Concomitant]
     Active Substance: VENLAFAXINE HYDROCHLORIDE
  3. VIRT PHOS NEUTRAL [Concomitant]
  4. ALBUTEROL HFA [Concomitant]
     Active Substance: ALBUTEROL SULFATE
  5. PROCHLORPERAZINE. [Concomitant]
     Active Substance: PROCHLORPERAZINE
  6. METOLAZONE. [Concomitant]
     Active Substance: METOLAZONE
  7. FERROUS SULFATE. [Concomitant]
     Active Substance: FERROUS SULFATE
  8. AMILORIDE [Concomitant]
     Active Substance: AMILORIDE
  9. EPIVIR [Concomitant]
     Active Substance: LAMIVUDINE
  10. DEXAMETHASONE. [Concomitant]
     Active Substance: DEXAMETHASONE
  11. MAGNESIUM OXIDE. [Concomitant]
     Active Substance: MAGNESIUM OXIDE
  12. BUMETANIDE. [Concomitant]
     Active Substance: BUMETANIDE
  13. MELOXICAM. [Concomitant]
     Active Substance: MELOXICAM
  14. TAMOXIFEN [Concomitant]
     Active Substance: TAMOXIFEN
  15. SODIUM BICARBONATE. [Concomitant]
     Active Substance: SODIUM BICARBONATE
  16. PREZISTA [Concomitant]
     Active Substance: DARUNAVIR ETHANOLATE
  17. PANTOPRAZOLE [Concomitant]
     Active Substance: PANTOPRAZOLE
  18. FUROSEMIDE. [Concomitant]
     Active Substance: FUROSEMIDE
  19. SENSIPAR [Concomitant]
     Active Substance: CINACALCET HYDROCHLORIDE
  20. CETIRIZINE [Concomitant]
     Active Substance: CETIRIZINE HYDROCHLORIDE
  21. BUPROPION HYDROCHLORIDE XL [Concomitant]
     Active Substance: BUPROPION HYDROCHLORIDE
  22. RENVELA [Concomitant]
     Active Substance: SEVELAMER CARBONATE
  23. DULOXETINE. [Concomitant]
     Active Substance: DULOXETINE
  24. FOLIC ACID. [Concomitant]
     Active Substance: FOLIC ACID
  25. FLUCONAZOLE. [Concomitant]
     Active Substance: FLUCONAZOLE
  26. HYDROCODONE/ACETAMINOPHEN [Concomitant]
     Active Substance: ACETAMINOPHEN\HYDROCODONE
  27. RENAGEL [SEVELAMER CARBONATE] [Concomitant]
  28. LIDOCAINE 5% EXTRA [Concomitant]
  29. TRAZODONE [Concomitant]
     Active Substance: TRAZODONE HYDROCHLORIDE
  30. METOPROLOL. [Concomitant]
     Active Substance: METOPROLOL
  31. NEXIUM 1?2?3 [Concomitant]
     Active Substance: AMOXICILLIN\CLARITHROMYCIN\ESOMEPRAZOLE
  32. DIAZEPAM. [Concomitant]
     Active Substance: DIAZEPAM
  33. VIREAD [Suspect]
     Active Substance: TENOFOVIR DISOPROXIL FUMARATE
     Indication: HIV INFECTION
     Dosage: UNK
     Route: 048
     Dates: start: 20150225, end: 2018
  34. ATRIPLA [Suspect]
     Active Substance: EFAVIRENZ\EMTRICITABINE\TENOFOVIR DISOPROXIL FUMARATE
     Indication: HIV INFECTION
     Dosage: UNK
     Route: 048
     Dates: start: 2008, end: 2015
  35. RENA?VITE [Concomitant]
     Active Substance: ASCORBIC ACID\BIOTIN\CALCIUM PANTOTHENATE\CYANOCOBALAMIN\FOLIC ACID\NIACINAMIDE\PYRIDOXINE HYDROCHLORIDE\RIBOFLAVIN\THIAMINE MONONITRATE
  36. ATORVASTATIN [Concomitant]
     Active Substance: ATORVASTATIN
  37. CARVEDILOL. [Concomitant]
     Active Substance: CARVEDILOL
  38. ESCITALOPRAM [Concomitant]
     Active Substance: ESCITALOPRAM OXALATE
  39. DAPSONE. [Concomitant]
     Active Substance: DAPSONE
  40. RANITIDINE. [Concomitant]
     Active Substance: RANITIDINE
  41. CYCLOBENZAPRINE. [Concomitant]
     Active Substance: CYCLOBENZAPRINE
  42. TACROLIMUS. [Concomitant]
     Active Substance: TACROLIMUS
  43. SEVELAMER [Concomitant]
     Active Substance: SEVELAMER
  44. GABAPENTIN. [Concomitant]
     Active Substance: GABAPENTIN
  45. HYDRALAZINE [Concomitant]
     Active Substance: HYDRALAZINE HYDROCHLORIDE
  46. ZEMPLAR [Concomitant]
     Active Substance: PARICALCITOL
  47. DRISDOL [Concomitant]
     Active Substance: ERGOCALCIFEROL
  48. NORVIR [Concomitant]
     Active Substance: RITONAVIR
  49. TIVICAY [Concomitant]
     Active Substance: DOLUTEGRAVIR SODIUM
  50. LYRICA [Concomitant]
     Active Substance: PREGABALIN
  51. DICLOFENAC SODIUM. [Concomitant]
     Active Substance: DICLOFENAC SODIUM
  52. OXYCODONE [Concomitant]
     Active Substance: OXYCODONE
  53. PAROXETINE. [Concomitant]
     Active Substance: PAROXETINE
  54. COMBIVENT RESPIMAT [Concomitant]
     Active Substance: ALBUTEROL SULFATE\IPRATROPIUM BROMIDE
  55. TRIAMTERENE + HCTZ [Concomitant]
     Active Substance: HYDROCHLOROTHIAZIDE\TRIAMTERENE
  56. ALPRAZOLAM. [Concomitant]
     Active Substance: ALPRAZOLAM
  57. ISENTRESS [Concomitant]
     Active Substance: RALTEGRAVIR POTASSIUM
  58. MYCOPHENOLIC ACID. [Concomitant]
     Active Substance: MYCOPHENOLIC ACID
  59. CHLORZOXAZONE. [Concomitant]
     Active Substance: CHLORZOXAZONE
  60. OMEPRAZOLE. [Concomitant]
     Active Substance: OMEPRAZOLE
  61. CALCIUM ACETATE. [Concomitant]
     Active Substance: CALCIUM ACETATE
  62. DESCOVY [Concomitant]
     Active Substance: EMTRICITABINE\TENOFOVIR ALAFENAMIDE FUMARATE
  63. INTELENCE [Concomitant]
     Active Substance: ETRAVIRINE
  64. HYDROXYZINE HCL [Concomitant]
     Active Substance: HYDROXYZINE HYDROCHLORIDE
  65. ACIDOPHILUS PROBIOTIC [Concomitant]
     Active Substance: LACTOBACILLUS ACIDOPHILUS
  66. AMLODIPINE BESYLATE. [Concomitant]
     Active Substance: AMLODIPINE BESYLATE
  67. ENVARSUS XR [Concomitant]
     Active Substance: TACROLIMUS
  68. SUMATRIPTAN. [Concomitant]
     Active Substance: SUMATRIPTAN
  69. AMITRIPTYLINE [Concomitant]
     Active Substance: AMITRIPTYLINE
  70. HYDROCHLOROTHIAZIDE. [Concomitant]
     Active Substance: HYDROCHLOROTHIAZIDE

REACTIONS (8)
  - Anxiety [Not Recovered/Not Resolved]
  - Depression [Not Recovered/Not Resolved]
  - End stage renal disease [Not Recovered/Not Resolved]
  - Anhedonia [Not Recovered/Not Resolved]
  - Pituitary-dependent Cushing^s syndrome [Unknown]
  - Economic problem [Not Recovered/Not Resolved]
  - Emotional distress [Not Recovered/Not Resolved]
  - Pain [Not Recovered/Not Resolved]

NARRATIVE: CASE EVENT DATE: 2011
